FAERS Safety Report 24927284 (Version 1)
Quarter: 2025Q1

REPORT INFORMATION
  Report Type: Spontaneous
  Country: FR (occurrence: FR)
  Receive Date: 20250205
  Receipt Date: 20250205
  Transmission Date: 20250409
  Serious: Yes (Other)
  Sender: SIEMENS
  Company Number: FR-SIEMENS HEALTHCARE LIMITED-PET-000007-2025

PATIENT
  Age: 46 Year
  Sex: Male
  Weight: 76 kg

DRUGS (1)
  1. FLUDEOXYGLUCOSE F-18 [Suspect]
     Active Substance: FLUDEOXYGLUCOSE F-18
     Indication: Oesophageal adenocarcinoma
     Route: 065
     Dates: start: 20241108

REACTIONS (1)
  - Pulmonary microemboli [Unknown]

NARRATIVE: CASE EVENT DATE: 20241108
